FAERS Safety Report 9612609 (Version 1)
Quarter: 2013Q4

REPORT INFORMATION
  Report Type: Spontaneous
  Country: US (occurrence: None)
  Receive Date: 20131008
  Receipt Date: 20131008
  Transmission Date: 20140711
  Serious: Yes (Hospitalization)
  Sender: FDA-Public Use
  Company Number: B0926476A

PATIENT
  Age: 37 Year
  Sex: Female

DRUGS (1)
  1. TOPOTECAN HYDROCHLORIDE [Suspect]
     Indication: OVARIAN CANCER
     Dosage: UNK / SEE DOSAGE TEXT / UNKNOWN

REACTIONS (1)
  - Acute febrile neutrophilic dermatosis [None]
